APPROVED DRUG PRODUCT: FOSAPREPITANT DIMEGLUMINE
Active Ingredient: FOSAPREPITANT DIMEGLUMINE
Strength: EQ 150MG BASE/VIAL
Dosage Form/Route: POWDER;INTRAVENOUS
Application: A214683 | Product #001
Applicant: PIRAMAL CRITICAL CARE INC
Approved: May 16, 2023 | RLD: No | RS: No | Type: DISCN